FAERS Safety Report 6158666-4 (Version None)
Quarter: 2009Q2

REPORT INFORMATION
  Report Type: 
  Country: None (occurrence: None)
  Receive Date: 20090417
  Receipt Date: 20090415
  Transmission Date: 20091009
  Serious: Yes (Other)
  Sender: FDA-Public Use
  Company Number: US-BAYER-200911125BCC

PATIENT
  Age: 30 Year
  Sex: Male
  Weight: 79 kg

DRUGS (2)
  1. ASPIRIN [Suspect]
     Indication: ANALGESIA
     Dosage: TOTAL DAILY DOSE: 650 MG  UNIT DOSE: 325 MG
     Route: 048
     Dates: start: 20090301, end: 20090412
  2. ASPIRIN [Suspect]
     Dosage: TOTAL DAILY DOSE: 325 MG  UNIT DOSE: 325 MG
     Route: 048
     Dates: start: 20090101

REACTIONS (2)
  - DRUG DEPENDENCE [None]
  - FATIGUE [None]
